FAERS Safety Report 7978712-2 (Version None)
Quarter: 2011Q4

REPORT INFORMATION
  Report Type: 
  Country: None (occurrence: None)
  Receive Date: 20111214
  Receipt Date: 20111206
  Transmission Date: 20120403
  Serious: Yes (Other)
  Sender: FDA-Public Use
  Company Number: JP-ASTELLAS-2011JP009119

PATIENT
  Age: 7 Year
  Sex: Female

DRUGS (7)
  1. METHOTREXATE [Concomitant]
     Indication: IMMUNOSUPPRESSANT DRUG THERAPY
     Route: 065
  2. CYCLOPHOSPHAMIDE [Concomitant]
     Route: 065
  3. BUSULFAN [Concomitant]
     Route: 065
  4. GANCICLOVIR [Concomitant]
     Indication: CYTOMEGALOVIRUS VIRAEMIA
     Route: 065
  5. PROGRAF [Suspect]
     Indication: IMMUNOSUPPRESSANT DRUG THERAPY
     Route: 065
  6. CYTARABINE [Concomitant]
     Route: 065
  7. PREDNISOLONE [Concomitant]
     Route: 042

REACTIONS (5)
  - DRUG INEFFECTIVE [None]
  - PNEUMONIA [None]
  - GRAFT VERSUS HOST DISEASE IN SKIN [None]
  - SEPSIS [None]
  - CYTOMEGALOVIRUS VIRAEMIA [None]
